FAERS Safety Report 6703363-7 (Version None)
Quarter: 2010Q2

REPORT INFORMATION
  Report Type: 
  Country: None (occurrence: None)
  Receive Date: 20100428
  Receipt Date: 20100412
  Transmission Date: 20101027
  Serious: Yes (Hospitalization)
  Sender: FDA-Public Use
  Company Number: TCI2010A01073

PATIENT
  Age: 70 Year
  Sex: Male

DRUGS (4)
  1. ACTOS [Suspect]
     Indication: DIABETES MELLITUS
     Dosage: 15 MG (15 MG, 1 D) PER ORAL
     Route: 048
     Dates: start: 20080112, end: 20090714
  2. ALPHA GLUCOSIDASE INHIBITORS [Concomitant]
  3. ANGIOTENSIN II ANTAGONISTS [Concomitant]
  4. ANTITHROMBOTIC AGENTS [Concomitant]

REACTIONS (2)
  - CEREBRAL INFARCTION [None]
  - HYPOAESTHESIA [None]
